FAERS Safety Report 23035841 (Version 2)
Quarter: 2023Q4

REPORT INFORMATION
  Report Type: Spontaneous
  Country: GB (occurrence: GB)
  Receive Date: 20231006
  Receipt Date: 20231016
  Transmission Date: 20240110
  Serious: Yes (Other)
  Sender: FDA-Public Use
  Company Number: GB-CELLTRION INC.-2023GB019216

PATIENT

DRUGS (1)
  1. INFLIXIMAB [Suspect]
     Active Substance: INFLIXIMAB
     Indication: Colitis ulcerative
     Dosage: 120 MILLIGRAM, EVERY OTHER WEEK
     Route: 058
     Dates: start: 20230915

REACTIONS (3)
  - Haematochezia [Unknown]
  - Mucous stools [Unknown]
  - Fatigue [Unknown]
